FAERS Safety Report 10259609 (Version 1)
Quarter: 2014Q2

REPORT INFORMATION
  Report Type: Spontaneous
  Country: FR (occurrence: FR)
  Receive Date: 20140625
  Receipt Date: 20140625
  Transmission Date: 20141212
  Serious: Yes (Hospitalization, Other)
  Sender: FDA-Public Use
  Company Number: FR-ACTAVIS-2014-13548

PATIENT
  Age: 50 Year
  Sex: Male

DRUGS (8)
  1. CARBAMAZEPINE (UNKNOWN) [Suspect]
     Indication: EPILEPSY
     Dosage: UNKNOWN
     Route: 065
     Dates: start: 2010
  2. CARBAMAZEPINE (UNKNOWN) [Suspect]
     Dosage: UNKNOWN
     Route: 065
     Dates: end: 1990
  3. OLANZAPINE (UNKNOWN) [Suspect]
     Indication: PSYCHOTIC DISORDER
     Dosage: UNKNOWN
     Route: 065
  4. CYAMEMAZINE [Concomitant]
     Indication: PSYCHOTIC DISORDER
     Dosage: UNKNOWN
     Route: 065
  5. PIPERACILLIN [Concomitant]
     Indication: BRAIN ABSCESS
     Dosage: UNKNOWN
     Route: 065
  6. CEFOTAXIME [Concomitant]
     Indication: BRAIN ABSCESS
     Dosage: UNKNOWN
     Route: 065
  7. FOSFOMYCIN [Concomitant]
     Indication: BRAIN ABSCESS
     Dosage: UNKNOWN
     Route: 065
  8. RIFAMPICIN [Concomitant]
     Indication: BRAIN ABSCESS
     Dosage: UNKNOWN
     Route: 065

REACTIONS (3)
  - Drug reaction with eosinophilia and systemic symptoms [Recovered/Resolved]
  - Cross sensitivity reaction [Unknown]
  - Rash maculo-papular [Unknown]
